FAERS Safety Report 16035177 (Version 2)
Quarter: 2019Q1

REPORT INFORMATION
  Report Type: Report from Study
  Country: FR (occurrence: FR)
  Receive Date: 20190305
  Receipt Date: 20190325
  Transmission Date: 20190418
  Serious: Yes (Hospitalization, Other)
  Sender: FDA-Public Use
  Company Number: FR-AMGEN-FRANI2019031057

PATIENT
  Age: 66 Year
  Sex: Male
  Weight: 75 kg

DRUGS (24)
  1. GAVISCON [Concomitant]
     Active Substance: ALUMINUM HYDROXIDE\MAGNESIUM CARBONATE
     Dosage: 1 UNK
     Dates: start: 20160217
  2. XANAX [Concomitant]
     Active Substance: ALPRAZOLAM
     Dosage: 0.25 MILLIGRAM
     Dates: start: 20160217
  3. VANCOMYCINE [Concomitant]
     Active Substance: VANCOMYCIN
     Dosage: 2-2.3 GRAM
     Dates: start: 20160222, end: 20160228
  4. WELLVONE [Concomitant]
     Active Substance: ATOVAQUONE
     Dosage: 5 MILLILITER
     Dates: start: 20160225
  5. PERFALGAN [Concomitant]
     Active Substance: ACETAMINOPHEN
     Dosage: 1 GRAM
     Dates: start: 20160217, end: 20160229
  6. TOPALGIC [Concomitant]
     Dosage: 50 MILLIGRAM
     Dates: start: 20160217, end: 20160229
  7. BLINATUMOMAB [Suspect]
     Active Substance: BLINATUMOMAB
     Dosage: UNK
     Route: 065
  8. DIFFU-K [Concomitant]
     Active Substance: POTASSIUM CHLORIDE
     Dosage: 1-2 UNK
     Dates: start: 20160218
  9. ACLOTINE [Concomitant]
     Active Substance: ANTITHROMBIN III HUMAN
     Dosage: 2000 INTERNATIONAL UNIT
     Dates: start: 20160217, end: 20160217
  10. FOLINORAL [Concomitant]
     Active Substance: LEUCOVORIN CALCIUM
     Dosage: 5 MILLIGRAM
     Dates: start: 20160220, end: 20160225
  11. INEXIUM [Concomitant]
     Active Substance: ESOMEPRAZOLE
     Dosage: 20 MILLIGRAM
     Dates: start: 20160225
  12. ZELITREX [Concomitant]
     Active Substance: VALACYCLOVIR HYDROCHLORIDE
     Dosage: 500 MILLIGRAM
     Dates: start: 20160219
  13. BACTRIM [Concomitant]
     Active Substance: SULFAMETHOXAZOLE\TRIMETHOPRIM
     Dosage: 1 UNK
     Dates: start: 20160220, end: 20160224
  14. TRANXENE [Concomitant]
     Active Substance: CLORAZEPATE DIPOTASSIUM
     Dosage: 20 MILLIGRAM
     Dates: start: 20160220, end: 20160412
  15. FLAGYL [Concomitant]
     Active Substance: METRONIDAZOLE\METRONIDAZOLE HYDROCHLORIDE
     Dosage: 500 MILLIGRAM
     Dates: start: 20160221, end: 20160224
  16. NEULASTA [Concomitant]
     Active Substance: PEGFILGRASTIM
     Dosage: 6 MG, UNK
     Dates: start: 20160208, end: 20160217
  17. FORTUM [Concomitant]
     Active Substance: CEFTAZIDIME
     Dosage: 4 GRAM
     Dates: start: 20160221, end: 20160329
  18. AMIKLIN [Concomitant]
     Active Substance: AMIKACIN SULFATE
     Dosage: 1700-1800 MILLIGRAM
     Dates: start: 20160221, end: 20160329
  19. INNOHEP [Concomitant]
     Active Substance: TINZAPARIN SODIUM
     Dosage: 0.7 MILLILITER
     Dates: start: 20160218
  20. BLINATUMOMAB [Suspect]
     Active Substance: BLINATUMOMAB
     Indication: B-CELL LYMPHOMA
     Dosage: 33.3 MICROGRAM, QD
     Route: 065
     Dates: start: 20160219
  21. DEXAMETHASONE. [Concomitant]
     Active Substance: DEXAMETHASONE
     Dosage: 20 MG, UNK
     Dates: start: 20160219
  22. BISOPROLOL [Concomitant]
     Active Substance: BISOPROLOL
     Dosage: 1.25 MILLIGRAM
     Dates: start: 20160220
  23. IMOVANE [Concomitant]
     Active Substance: ZOPICLONE
     Dosage: 3.75 MILLIGRAM
     Dates: start: 20160217
  24. ACUPAN [Concomitant]
     Active Substance: NEFOPAM HYDROCHLORIDE
     Dosage: 20 MILLIGRAM
     Dates: start: 20160217, end: 20160229

REACTIONS (4)
  - Nervous system disorder [Recovered/Resolved]
  - Nervous system disorder [Recovered/Resolved]
  - Encephalopathy [Recovered/Resolved]
  - Nervous system disorder [Recovered/Resolved]

NARRATIVE: CASE EVENT DATE: 20160226
